FAERS Safety Report 10074158 (Version 5)
Quarter: 2014Q4

REPORT INFORMATION
  Report Type: Spontaneous
  Country: US (occurrence: US)
  Receive Date: 20140413
  Receipt Date: 20141202
  Transmission Date: 20150528
  Serious: Yes (Hospitalization, Disabling, Other)
  Sender: FDA-Public Use
  Company Number: US-009507513-1404USA004031

PATIENT
  Sex: Male
  Weight: 79.37 kg

DRUGS (2)
  1. PROPECIA [Suspect]
     Active Substance: FINASTERIDE
     Indication: ALOPECIA
     Dosage: 1 MG, QD
     Route: 048
     Dates: start: 19980914, end: 20040610
  2. PROPECIA [Suspect]
     Active Substance: FINASTERIDE
     Dosage: 1 MG, QD
     Route: 048
     Dates: start: 20040811

REACTIONS (16)
  - Mammoplasty [Unknown]
  - Anxiety [Not Recovered/Not Resolved]
  - Benign prostatic hyperplasia [Unknown]
  - Penile prosthesis insertion [Unknown]
  - Emotional distress [Not Recovered/Not Resolved]
  - Lower urinary tract symptoms [Unknown]
  - Mammoplasty [Unknown]
  - Breast mass [Unknown]
  - Erectile dysfunction [Unknown]
  - Depression [Not Recovered/Not Resolved]
  - Testicular failure [Unknown]
  - Gynaecomastia [Unknown]
  - Penile prosthesis removal [Unknown]
  - Penile prosthesis insertion [Unknown]
  - Hypogonadism [Unknown]
  - Sexual dysfunction [Not Recovered/Not Resolved]

NARRATIVE: CASE EVENT DATE: 199811
